FAERS Safety Report 9606260 (Version 1)
Quarter: 2013Q4

REPORT INFORMATION
  Report Type: Spontaneous
  Country: US (occurrence: US)
  Receive Date: 20131008
  Receipt Date: 20131008
  Transmission Date: 20140711
  Serious: No
  Sender: FDA-Public Use
  Company Number: US-AMGEN-USASP2013046211

PATIENT
  Sex: Female

DRUGS (1)
  1. PROLIA [Suspect]
     Indication: FIBROUS DYSPLASIA OF BONE
     Dosage: 60 MG, Q6MO
     Dates: start: 201007

REACTIONS (3)
  - Impaired healing [Unknown]
  - Laceration [Unknown]
  - Contusion [Unknown]
